FAERS Safety Report 9270053 (Version 1)
Quarter: 2013Q2

REPORT INFORMATION
  Report Type: Spontaneous
  Country: US (occurrence: US)
  Receive Date: 20130503
  Receipt Date: 20130503
  Transmission Date: 20140414
  Serious: No
  Sender: FDA-Public Use
  Company Number: US-ASTRAZENECA-2013SE27834

PATIENT
  Sex: Female

DRUGS (2)
  1. ZOMIG [Suspect]
     Indication: MIGRAINE
     Route: 048
     Dates: start: 1998
  2. OTHER MEDICATIONS [Suspect]
     Route: 065

REACTIONS (2)
  - Cardiac disorder [Unknown]
  - Cardiac disorder [Unknown]
